FAERS Safety Report 7480396-7 (Version None)
Quarter: 2011Q2

REPORT INFORMATION
  Report Type: 
  Country: None (occurrence: None)
  Receive Date: 20110506
  Receipt Date: 20110119
  Transmission Date: 20111010
  Serious: Yes (Disabling)
  Sender: FDA-Public Use
  Company Number: WAES 1012USA03694

PATIENT
  Age: 51 Year
  Sex: Male

DRUGS (6)
  1. BORTEZOMIB [Suspect]
     Indication: MULTIPLE MYELOMA
     Dosage: 1.6 MG/DAILY/ IV
     Route: 042
     Dates: start: 20100917, end: 20101217
  2. CAP VORINOSTAT [Suspect]
     Indication: MULTIPLE MYELOMA
     Dosage: 300 MG/DAILY/PO
     Route: 048
     Dates: start: 20100917, end: 20101219
  3. CHLORPHENIRAMINE MALEATE [Concomitant]
  4. PLATELETS LEUKOCYTE [Concomitant]
  5. OXYCODONE MCL [Concomitant]
  6. LEUKOCYTE REDUCED [Concomitant]

REACTIONS (1)
  - DEAFNESS NEUROSENSORY [None]
